FAERS Safety Report 18527866 (Version 1)
Quarter: 2020Q4

REPORT INFORMATION
  Report Type: Spontaneous
  Country: US (occurrence: US)
  Receive Date: 20201120
  Receipt Date: 20201120
  Transmission Date: 20210114
  Serious: No
  Sender: FDA-Public Use
  Company Number: US-009507513-2011USA011109

PATIENT
  Sex: Female

DRUGS (4)
  1. PRINIVIL [Concomitant]
     Active Substance: LISINOPRIL
  2. KEYTRUDA [Suspect]
     Active Substance: PEMBROLIZUMAB
  3. LENVATINIB MESYLATE [Suspect]
     Active Substance: LENVATINIB MESYLATE
     Indication: ENDOMETRIAL CANCER METASTATIC
     Dosage: 20 MILLIGRAM, QD
     Dates: start: 20201027
  4. ATENOLOL. [Concomitant]
     Active Substance: ATENOLOL

REACTIONS (5)
  - Paraesthesia [Unknown]
  - Pain in extremity [Unknown]
  - Limb discomfort [Unknown]
  - Burning sensation [Unknown]
  - Drug effective for unapproved indication [Unknown]
